FAERS Safety Report 8538990-8 (Version None)
Quarter: 2012Q3

REPORT INFORMATION
  Report Type: 
  Country: None (occurrence: None)
  Receive Date: 20120726
  Receipt Date: 20120723
  Transmission Date: 20120928
  Serious: Yes (Hospitalization)
  Sender: FDA-Public Use
  Company Number: PHHY2012AU045943

PATIENT
  Sex: Female

DRUGS (11)
  1. CITRACAL [Concomitant]
  2. PREDNISOLONE [Concomitant]
  3. PANTOPRAZOLE [Concomitant]
  4. KARVEA [Concomitant]
  5. AMITRIPTYLINE HYDROCHLORIDE [Concomitant]
  6. CRESTOR [Concomitant]
  7. LYRICA [Concomitant]
  8. SYMBICORT [Concomitant]
  9. ZOLEDRONOC ACID [Suspect]
     Dosage: 5 MG, YEARLY
     Route: 042
     Dates: start: 20110419
  10. VITAMIN D [Concomitant]
  11. ATENOLOL [Concomitant]

REACTIONS (3)
  - SPINAL COMPRESSION FRACTURE [None]
  - INTERVERTEBRAL DISC PROTRUSION [None]
  - SPONDYLOLISTHESIS [None]
